FAERS Safety Report 23423067 (Version 1)
Quarter: 2024Q1

REPORT INFORMATION
  Report Type: Spontaneous
  Country: IN (occurrence: IN)
  Receive Date: 20240119
  Receipt Date: 20240119
  Transmission Date: 20240410
  Serious: Yes (Other)
  Sender: FDA-Public Use
  Company Number: IN-PURDUE-USA-2024-0307180

PATIENT

DRUGS (1)
  1. THEOPHYLLINE ANHYDROUS [Suspect]
     Active Substance: THEOPHYLLINE ANHYDROUS
     Indication: Infantile apnoea
     Dosage: UNK
     Route: 065

REACTIONS (1)
  - Neonatal tachycardia [Unknown]
